FAERS Safety Report 7787843-1 (Version None)
Quarter: 2011Q3

REPORT INFORMATION
  Report Type: 
  Country: None (occurrence: None)
  Receive Date: 20110930
  Receipt Date: 20110919
  Transmission Date: 20111222
  Serious: No
  Sender: FDA-Public Use
  Company Number: US-BIOGENIDEC-2010BI015551

PATIENT
  Age: 50 Year
  Sex: Female

DRUGS (1)
  1. TYSABRI [Suspect]
     Indication: MULTIPLE SCLEROSIS
     Route: 042
     Dates: start: 20100423

REACTIONS (5)
  - MICTURITION URGENCY [None]
  - WHITE BLOOD CELL COUNT INCREASED [None]
  - ILL-DEFINED DISORDER [None]
  - POLLAKIURIA [None]
  - BLADDER DISORDER [None]
